FAERS Safety Report 6986762-8 (Version None)
Quarter: 2010Q3

REPORT INFORMATION
  Report Type: 
  Country: None (occurrence: None)
  Receive Date: 20100915
  Receipt Date: 20090806
  Transmission Date: 20110219
  Serious: No
  Sender: FDA-Public Use
  Company Number: US-WYE-H10528109

PATIENT
  Sex: Female
  Weight: 111.23 kg

DRUGS (6)
  1. PRISTIQ [Suspect]
     Indication: DEPRESSION
     Dosage: UNKNOWN
     Route: 048
     Dates: start: 20090201, end: 20090101
  2. PRISTIQ [Suspect]
     Route: 048
     Dates: start: 20090701
  3. NEURONTIN [Concomitant]
  4. DARVOCET-N 100 [Concomitant]
  5. DEPAKOTE [Concomitant]
  6. ATENOLOL [Concomitant]

REACTIONS (3)
  - DRUG INEFFECTIVE [None]
  - INCREASED APPETITE [None]
  - WEIGHT INCREASED [None]
